FAERS Safety Report 8386401-8 (Version None)
Quarter: 2012Q2

REPORT INFORMATION
  Report Type: 
  Country: None (occurrence: None)
  Receive Date: 20120525
  Receipt Date: 20120522
  Transmission Date: 20120825
  Serious: Yes (Other)
  Sender: FDA-Public Use
  Company Number: ZA-JNJFOC-20120517655

PATIENT
  Sex: Female

DRUGS (1)
  1. NICORETTE [Suspect]
     Indication: SMOKING CESSATION THERAPY
     Route: 002
     Dates: start: 20060101

REACTIONS (4)
  - INCORRECT DRUG ADMINISTRATION DURATION [None]
  - CHEST PAIN [None]
  - NICOTINE DEPENDENCE [None]
  - OVERDOSE [None]
